FAERS Safety Report 7526613-6 (Version None)
Quarter: 2011Q2

REPORT INFORMATION
  Report Type: 
  Country: None (occurrence: None)
  Receive Date: 20110606
  Receipt Date: 20110531
  Transmission Date: 20111010
  Serious: Yes (Other)
  Sender: FDA-Public Use
  Company Number: US-PFIZER INC-2007000878

PATIENT
  Sex: Female
  Weight: 63.492 kg

DRUGS (20)
  1. ZYRTEC [Concomitant]
     Indication: SINUS DISORDER
     Dosage: 10 MG, UNK
  2. AMITRIPTYLINE [Concomitant]
     Indication: ANXIETY
  3. SPIRIVA [Concomitant]
     Dosage: UNK
  4. PAXIL [Concomitant]
     Indication: DEPRESSION
  5. PROMETHAZINE HYDROCHLORIDE [Concomitant]
     Dosage: 25 MG, UNK
  6. PREMARIN [Concomitant]
     Dosage: 0.062 MG, UNK
  7. CHANTIX [Suspect]
     Indication: SMOKING CESSATION THERAPY
     Dosage: 0.5 MG, 1X/DAY
     Dates: start: 20061201
  8. DIAZEPAM [Concomitant]
     Indication: SLEEP DISORDER
     Dosage: 4 MG, DAILY
     Route: 048
  9. NICODERM [Suspect]
     Dosage: UNK
  10. ASPIRIN [Concomitant]
     Dosage: 81 MG, UNK
  11. LOPERAMIDE [Concomitant]
     Dosage: AS NEEDED
  12. AMITRIPTYLINE [Concomitant]
     Indication: DEPRESSION
     Dosage: 4 MG, UNK
     Route: 048
  13. PAXIL [Concomitant]
     Indication: ANXIETY
     Dosage: 0.5 MG, 1X/DAY
     Route: 048
  14. DIAZEPAM [Concomitant]
     Indication: ANXIETY
  15. AMITRIPTYLINE [Concomitant]
     Indication: NEUROPATHY PERIPHERAL
  16. CHANTIX [Suspect]
     Dosage: UNK
     Dates: end: 20090101
  17. RHINOCORT [Concomitant]
  18. TIAZAC [Concomitant]
     Indication: CARDIAC DISORDER
  19. DIAZEPAM [Concomitant]
     Indication: DEPRESSION
  20. MECLIZINE [Concomitant]
     Indication: DIZZINESS
     Dosage: 2.5 MG, 2X/DAY

REACTIONS (10)
  - LIP AND/OR ORAL CAVITY CANCER [None]
  - EAR INJURY [None]
  - POLYURIA [None]
  - TONGUE CYST [None]
  - HEARING IMPAIRED [None]
  - BALANCE DISORDER [None]
  - WEIGHT INCREASED [None]
  - AGGRESSION [None]
  - NERVOUSNESS [None]
  - FALL [None]
